FAERS Safety Report 9091388 (Version 1)
Quarter: 2013Q1

REPORT INFORMATION
  Report Type: Report from Study
  Country: US (occurrence: US)
  Receive Date: 20130131
  Receipt Date: 20130131
  Transmission Date: 20140127
  Serious: No
  Sender: FDA-Public Use
  Company Number: US-ABBOTT-12P-163-1001030-00

PATIENT
  Age: 56 Year
  Sex: Female

DRUGS (8)
  1. HUMIRA [Suspect]
     Indication: CROHN^S DISEASE
     Dates: start: 20120918
  2. METHOTREXATE [Concomitant]
     Indication: PRODUCT USED FOR UNKNOWN INDICATION
     Dosage: 0.5ML WEEKLY
  3. ENTOCORT [Concomitant]
     Indication: CROHN^S DISEASE
  4. FOLIC ACID [Concomitant]
     Indication: CROHN^S DISEASE
     Dosage: 5MG WEEKLY
  5. CYMBALTA [Concomitant]
     Indication: DEPRESSION
  6. NEXIUM [Concomitant]
     Indication: GASTROOESOPHAGEAL REFLUX DISEASE
  7. IMITREX [Concomitant]
     Indication: MIGRAINE
  8. MAXAIR RESCUE INHALER [Concomitant]
     Indication: ASTHMA

REACTIONS (4)
  - Abnormal faeces [Unknown]
  - Injection site pain [Recovered/Resolved]
  - Pain [Recovered/Resolved]
  - Rectal haemorrhage [Not Recovered/Not Resolved]
